FAERS Safety Report 16306252 (Version 2)
Quarter: 2021Q1

REPORT INFORMATION
  Report Type: Spontaneous
  Country: US (occurrence: US)
  Receive Date: 20190513
  Receipt Date: 20210226
  Transmission Date: 20210419
  Serious: Yes (Other)
  Sender: FDA-Public Use
  Company Number: US-ASTRAZENECA-2019SE65418

PATIENT
  Age: 775 Month
  Sex: Female
  Weight: 90.3 kg

DRUGS (57)
  1. OMEPRAZOLE. [Suspect]
     Active Substance: OMEPRAZOLE
     Dosage: GENERIC
     Route: 065
  2. DEXILANT [Suspect]
     Active Substance: DEXLANSOPRAZOLE
     Dosage: MR
     Route: 065
     Dates: start: 20120611
  3. BYDUREON [Concomitant]
     Active Substance: EXENATIDE
     Indication: DIABETES MELLITUS
     Dates: start: 200901
  4. GABAPENTIN. [Concomitant]
     Active Substance: GABAPENTIN
     Indication: NEURALGIA
     Dates: start: 200901
  5. ONDASETRON [Concomitant]
     Active Substance: ONDANSETRON
     Indication: NAUSEA
     Dates: start: 201102
  6. PLAVIX [Concomitant]
     Active Substance: CLOPIDOGREL BISULFATE
     Indication: ANTICOAGULANT THERAPY
     Dates: start: 201102
  7. VITAMIN B12 [Concomitant]
     Active Substance: CYANOCOBALAMIN
     Indication: BLOOD COUNT
     Dates: start: 201102
  8. TRAMADOL. [Concomitant]
     Active Substance: TRAMADOL
  9. GABAPENTIN. [Concomitant]
     Active Substance: GABAPENTIN
  10. CLOPIDOGREL [Concomitant]
     Active Substance: CLOPIDOGREL BISULFATE
  11. LEVETIRACETAM. [Concomitant]
     Active Substance: LEVETIRACETAM
  12. AMOX?CLAV [Concomitant]
     Active Substance: AMOXICILLIN\CLAVULANATE POTASSIUM
  13. DEXILANT [Suspect]
     Active Substance: DEXLANSOPRAZOLE
     Route: 065
     Dates: start: 201102, end: 201404
  14. NITROSTAT [Concomitant]
     Active Substance: NITROGLYCERIN
     Indication: CHEST PAIN
     Dates: start: 201102
  15. IRON [Concomitant]
     Active Substance: IRON
     Indication: ANAEMIA
     Dates: start: 201102
  16. RANITIDINE. [Concomitant]
     Active Substance: RANITIDINE
     Dates: start: 20130429, end: 20161130
  17. CARVEDILOL. [Concomitant]
     Active Substance: CARVEDILOL
  18. ISOSORBIDE. [Concomitant]
     Active Substance: ISOSORBIDE
  19. ALPRAZOLAM. [Concomitant]
     Active Substance: ALPRAZOLAM
     Indication: ANXIETY
     Dates: start: 200901
  20. ALPRAZOLAM. [Concomitant]
     Active Substance: ALPRAZOLAM
     Indication: PANIC ATTACK
     Dates: start: 200901
  21. ASPIRIN. [Concomitant]
     Active Substance: ASPIRIN
     Indication: CARDIAC DISORDER
     Dates: start: 201102
  22. VITAMIN B12 [Concomitant]
     Active Substance: CYANOCOBALAMIN
     Indication: NEURALGIA
     Dates: start: 201102
  23. ONGLYZA [Concomitant]
     Active Substance: SAXAGLIPTIN HYDROCHLORIDE
  24. HYDROCODONE [Concomitant]
     Active Substance: HYDROCODONE
  25. ATORVASTATIN [Concomitant]
     Active Substance: ATORVASTATIN
     Indication: BLOOD CHOLESTEROL INCREASED
     Dates: start: 201102
  26. ALPRAZOLAM. [Concomitant]
     Active Substance: ALPRAZOLAM
  27. RANITIDINE. [Concomitant]
     Active Substance: RANITIDINE
  28. SULFAMETHOXAZOLE [Concomitant]
     Active Substance: SULFAMETHOXAZOLE
  29. OMEPRAZOLE. [Suspect]
     Active Substance: OMEPRAZOLE
     Dosage: GENERIC? MR
     Route: 065
     Dates: start: 20111118
  30. FUROSEMIDE. [Concomitant]
     Active Substance: FUROSEMIDE
  31. NOVOLOG [Concomitant]
     Active Substance: INSULIN ASPART
  32. MUPIROCIN. [Concomitant]
     Active Substance: MUPIROCIN
  33. PREDNISONE. [Concomitant]
     Active Substance: PREDNISONE
  34. FERROUS SULFATE. [Concomitant]
     Active Substance: FERROUS SULFATE
  35. NEXIUM [Suspect]
     Active Substance: ESOMEPRAZOLE MAGNESIUM
     Route: 048
     Dates: start: 201102, end: 201404
  36. PAXIL [Concomitant]
     Active Substance: PAROXETINE HYDROCHLORIDE
     Indication: DEPRESSION
     Dates: start: 201102
  37. TUMS [Concomitant]
     Active Substance: CALCIUM CARBONATE
     Dates: start: 200901, end: 201101
  38. SUCRALFATE. [Concomitant]
     Active Substance: SUCRALFATE
  39. ISOSORBIDE. [Concomitant]
     Active Substance: ISOSORBIDE
  40. ZOFRAN [Concomitant]
     Active Substance: ONDANSETRON HYDROCHLORIDE
  41. PROTONIX [Suspect]
     Active Substance: PANTOPRAZOLE SODIUM
     Route: 065
     Dates: start: 201102, end: 201404
  42. BYDUREON [Concomitant]
     Active Substance: EXENATIDE
     Indication: BLOOD INSULIN ABNORMAL
     Dates: start: 200901
  43. LEVOTHYROXINE. [Concomitant]
     Active Substance: LEVOTHYROXINE
     Indication: THYROID NEOPLASM
     Dates: start: 201102
  44. METOCLOPRAMIDE. [Concomitant]
     Active Substance: METOCLOPRAMIDE
  45. PAROXETINE. [Concomitant]
     Active Substance: PAROXETINE
  46. LEVOFLOXACIN. [Concomitant]
     Active Substance: LEVOFLOXACIN
  47. METHENAMINE [Concomitant]
     Active Substance: METHENAMINE
  48. PYRIDIUM [Concomitant]
     Active Substance: PHENAZOPYRIDINE
     Indication: INCONTINENCE
     Dates: start: 200901
  49. JANUVIA [Concomitant]
     Active Substance: SITAGLIPTIN PHOSPHATE
  50. SIMVASTATIN. [Concomitant]
     Active Substance: SIMVASTATIN
  51. EFFIENT [Concomitant]
     Active Substance: PRASUGREL HYDROCHLORIDE
  52. CREON [Concomitant]
     Active Substance: PANCRELIPASE AMYLASE\PANCRELIPASE LIPASE\PANCRELIPASE PROTEASE
  53. LISINOPRIL. [Concomitant]
     Active Substance: LISINOPRIL
  54. RANEXA [Concomitant]
     Active Substance: RANOLAZINE
  55. DIPHENHYDRAMINE. [Concomitant]
     Active Substance: DIPHENHYDRAMINE
  56. TRULICITY [Concomitant]
     Active Substance: DULAGLUTIDE
  57. XANAX [Concomitant]
     Active Substance: ALPRAZOLAM

REACTIONS (5)
  - Nephrogenic anaemia [Unknown]
  - Acute kidney injury [Not Recovered/Not Resolved]
  - Hyperparathyroidism secondary [Unknown]
  - Chronic kidney disease [Not Recovered/Not Resolved]
  - Gastrooesophageal reflux disease [Not Recovered/Not Resolved]

NARRATIVE: CASE EVENT DATE: 201401
